FAERS Safety Report 8391784-9 (Version None)
Quarter: 2012Q2

REPORT INFORMATION
  Report Type: 
  Country: None (occurrence: None)
  Receive Date: 20120529
  Receipt Date: 20120524
  Transmission Date: 20120825
  Serious: Yes (Hospitalization, Other)
  Sender: FDA-Public Use
  Company Number: US-ABBOTT-11P-163-0854393-00

PATIENT
  Sex: Male
  Weight: 113.5 kg

DRUGS (2)
  1. MANY MEDICATIONS [Concomitant]
     Indication: HEART RATE IRREGULAR
  2. HUMIRA [Suspect]
     Indication: RHEUMATOID ARTHRITIS

REACTIONS (4)
  - SPINAL COLUMN STENOSIS [None]
  - NERVE COMPRESSION [None]
  - WALKING AID USER [None]
  - FALL [None]
